FAERS Safety Report 6380436-2 (Version None)
Quarter: 2009Q3

REPORT INFORMATION
  Report Type: 
  Country: None (occurrence: None)
  Receive Date: 20090921
  Receipt Date: 20090907
  Transmission Date: 20100115
  Serious: Yes (Death)
  Sender: FDA-Public Use
  Company Number: 2009BM000224

PATIENT
  Age: 13 Year
  Sex: Female
  Weight: 20 kg

DRUGS (3)
  1. NAGLAZYME [Suspect]
     Indication: MUCOPOLYSACCHARIDOSIS VI
     Dosage: 20 MG; QW; IV DRIP
     Route: 041
     Dates: start: 20090301, end: 20090801
  2. ANTIBIOTICS [Concomitant]
  3. PHENOBARB [Concomitant]

REACTIONS (3)
  - LOSS OF CONSCIOUSNESS [None]
  - NO THERAPEUTIC RESPONSE [None]
  - SEPSIS [None]
